FAERS Safety Report 7776217-5 (Version None)
Quarter: 2011Q3

REPORT INFORMATION
  Report Type: 
  Country: None (occurrence: None)
  Receive Date: 20110926
  Receipt Date: 20110922
  Transmission Date: 20111222
  Serious: No
  Sender: FDA-Public Use
  Company Number: US-PFIZER INC-2011226098

PATIENT
  Sex: Female

DRUGS (1)
  1. ADVIL LIQUI-GELS [Suspect]
     Indication: TOOTHACHE
     Dosage: 600 MG, UNK
     Route: 048
     Dates: start: 20110922

REACTIONS (2)
  - SOMNOLENCE [None]
  - MALAISE [None]
